FAERS Safety Report 17454427 (Version 1)
Quarter: 2020Q1

REPORT INFORMATION
  Report Type: Spontaneous
  Country: CZ (occurrence: CZ)
  Receive Date: 20200225
  Receipt Date: 20200225
  Transmission Date: 20200409
  Serious: Yes (Other)
  Sender: FDA-Public Use
  Company Number: CZ-APOTEX-2020AP008114

PATIENT
  Sex: Female

DRUGS (8)
  1. MIRTAZAPINE. [Interacting]
     Active Substance: MIRTAZAPINE
     Indication: AFFECTIVE DISORDER
     Dosage: UNK
     Route: 065
  2. AMISULPRIDE [Concomitant]
     Active Substance: AMISULPRIDE
     Indication: DEPRESSION
  3. LAMOTRIGINE. [Concomitant]
     Active Substance: LAMOTRIGINE
     Indication: AFFECTIVE DISORDER
     Dosage: 25 MG, BID
     Route: 065
  4. MIRTAZAPINE. [Interacting]
     Active Substance: MIRTAZAPINE
     Indication: DEPRESSION
  5. PAROXETINE. [Suspect]
     Active Substance: PAROXETINE
     Indication: AFFECTIVE DISORDER
     Dosage: UNK
     Route: 065
  6. MIRTAZAPINE. [Interacting]
     Active Substance: MIRTAZAPINE
     Indication: MENTAL DISORDER
  7. PAROXETINE. [Interacting]
     Active Substance: PAROXETINE
     Indication: DEPRESSION
  8. AMISULPRIDE [Concomitant]
     Active Substance: AMISULPRIDE
     Indication: AFFECTIVE DISORDER
     Dosage: 50 MG
     Route: 065

REACTIONS (13)
  - Restlessness [Unknown]
  - Insomnia [Unknown]
  - Aggression [Unknown]
  - Fear of falling [Unknown]
  - Fatigue [Unknown]
  - Somnolence [Unknown]
  - Anxiety [Recovered/Resolved]
  - Drug interaction [Unknown]
  - Nervousness [Unknown]
  - Suicidal ideation [Unknown]
  - Abulia [Unknown]
  - Decreased appetite [Unknown]
  - Depression [Unknown]
